FAERS Safety Report 4367110-9 (Version None)
Quarter: 2004Q2

REPORT INFORMATION
  Report Type: 
  Country: None (occurrence: None)
  Receive Date: 20040528
  Receipt Date: 20040406
  Transmission Date: 20050107
  Serious: Yes (Other)
  Sender: FDA-Public Use
  Company Number: US-GLAXOSMITHKLINE-A0505967A

PATIENT
  Age: 16 Year
  Sex: Female
  Weight: 54.5 kg

DRUGS (1)
  1. WELLBUTRIN [Suspect]
     Indication: DEPRESSION
     Dosage: 300MG SEE DOSAGE TEXT
     Route: 048
     Dates: start: 20040301

REACTIONS (7)
  - CONVULSION [None]
  - DROOLING [None]
  - EYE ROLLING [None]
  - FALL [None]
  - HEADACHE [None]
  - MEDICATION ERROR [None]
  - TREMOR [None]
